FAERS Safety Report 25719806 (Version 1)
Quarter: 2025Q3

REPORT INFORMATION
  Report Type: Spontaneous
  Country: KR (occurrence: KR)
  Receive Date: 20250825
  Receipt Date: 20250825
  Transmission Date: 20251020
  Serious: Yes (Hospitalization)
  Sender: JOHNSON AND JOHNSON
  Company Number: KR-JNJFOC-20250822904

PATIENT
  Sex: Female
  Weight: 39 kg

DRUGS (9)
  1. MACITENTAN [Suspect]
     Active Substance: MACITENTAN
     Indication: Pulmonary arterial hypertension
     Dates: start: 20170824
  2. MACITENTAN [Suspect]
     Active Substance: MACITENTAN
     Indication: Cor pulmonale
  3. SPIRONOLACTONE [Concomitant]
     Active Substance: SPIRONOLACTONE
     Indication: Product used for unknown indication
     Route: 065
     Dates: start: 20161024
  4. PANTOPRAZOLE SODIUM [Concomitant]
     Active Substance: PANTOPRAZOLE SODIUM
     Indication: Product used for unknown indication
     Route: 065
     Dates: start: 20161024
  5. ACETAMINOPHEN [Concomitant]
     Active Substance: ACETAMINOPHEN
     Indication: Product used for unknown indication
     Route: 065
  6. FUROSEMIDE [Concomitant]
     Active Substance: FUROSEMIDE
     Indication: Product used for unknown indication
     Route: 065
     Dates: start: 20161024
  7. SILDENAFIL CITRATE [Concomitant]
     Active Substance: SILDENAFIL CITRATE
     Indication: Product used for unknown indication
     Route: 065
     Dates: start: 20170112
  8. ASPIRIN [Concomitant]
     Active Substance: ASPIRIN
     Indication: Product used for unknown indication
     Route: 065
     Dates: start: 20171013
  9. ACETAMINOPHEN [Concomitant]
     Active Substance: ACETAMINOPHEN
     Indication: Product used for unknown indication
     Route: 065

REACTIONS (8)
  - Chest pain [Recovered/Resolved]
  - Asthenia [Recovered/Resolved]
  - Headache [Recovered/Resolved]
  - Nausea [Recovered/Resolved]
  - Headache [Recovered/Resolved]
  - Paraesthesia [Recovered/Resolved]
  - Burning sensation [Recovered/Resolved]
  - Pain [Recovered/Resolved]

NARRATIVE: CASE EVENT DATE: 20170824
